FAERS Safety Report 7900892-5 (Version None)
Quarter: 2011Q4

REPORT INFORMATION
  Report Type: 
  Country: None (occurrence: None)
  Receive Date: 20111104
  Receipt Date: 20111021
  Transmission Date: 20120403
  Serious: Yes (Death, Hospitalization)
  Sender: FDA-Public Use
  Company Number: 2011PL000135

PATIENT
  Age: 72 Year
  Sex: Male
  Weight: 56 kg

DRUGS (6)
  1. PRAVASTATIN SODIUM [Concomitant]
  2. AMLODIPINE [Concomitant]
  3. PROLEUKIN [Suspect]
     Indication: METASTASES TO CENTRAL NERVOUS SYSTEM
     Dates: start: 20100628, end: 20100821
  4. PROLEUKIN [Suspect]
     Indication: METASTASES TO LIVER
     Dates: start: 20100628, end: 20100821
  5. PROLEUKIN [Suspect]
     Indication: METASTASES TO LUNG
     Dates: start: 20100628, end: 20100821
  6. PROLEUKIN [Suspect]
     Indication: METASTASES TO ADRENALS
     Dates: start: 20100628, end: 20100821

REACTIONS (6)
  - ANGIOSARCOMA [None]
  - OEDEMA [None]
  - CAPILLARY PERMEABILITY INCREASED [None]
  - MULTI-ORGAN FAILURE [None]
  - NEOPLASM PROGRESSION [None]
  - CARDIAC FUNCTION TEST ABNORMAL [None]
